FAERS Safety Report 5192815-X (Version None)
Quarter: 2006Q4

REPORT INFORMATION
  Report Type: 
  Country: None (occurrence: None)
  Receive Date: 20061228
  Receipt Date: 20051109
  Transmission Date: 20070319
  Serious: No
  Sender: FDA-Public Use
  Company Number: US-GLAXOSMITHKLINE-A0581621A

PATIENT
  Age: 27 Year
  Sex: Female

DRUGS (2)
  1. FLONASE [Suspect]
     Indication: RHINITIS
     Dosage: 50MCG TWICE PER DAY
     Route: 045
     Dates: start: 20051101, end: 20051105
  2. NO CONCURRENT MEDICATION [Concomitant]

REACTIONS (1)
  - GASTROOESOPHAGEAL REFLUX DISEASE [None]
